FAERS Safety Report 9293022 (Version 1)
Quarter: 2013Q2

REPORT INFORMATION
  Report Type: Spontaneous
  Country: US (occurrence: None)
  Receive Date: 20130515
  Receipt Date: 20130515
  Transmission Date: 20140414
  Serious: Yes (Disabling)
  Sender: FDA-Public Use
  Company Number: None

PATIENT
  Age: 36 Year
  Sex: Male
  Weight: 74.84 kg

DRUGS (1)
  1. CIPROFLOXACIN [Suspect]
     Indication: CYSTITIS
     Route: 048
     Dates: start: 20120521, end: 20120603

REACTIONS (14)
  - Abdominal pain upper [None]
  - Anxiety [None]
  - Panic attack [None]
  - Pain [None]
  - Muscle twitching [None]
  - Chondropathy [None]
  - Insomnia [None]
  - Pain in extremity [None]
  - Muscular weakness [None]
  - Pain in extremity [None]
  - Arthralgia [None]
  - Arthralgia [None]
  - Pain in extremity [None]
  - Weight decreased [None]
